FAERS Safety Report 8445845-6 (Version None)
Quarter: 2012Q2

REPORT INFORMATION
  Report Type: 
  Country: None (occurrence: None)
  Receive Date: 20120618
  Receipt Date: 20120614
  Transmission Date: 20120825
  Serious: Yes (Hospitalization)
  Sender: FDA-Public Use
  Company Number: US-PFIZER INC-2012082636

PATIENT
  Sex: Male

DRUGS (3)
  1. RELPAX [Suspect]
     Dosage: 40 MG, UNK
  2. LIPITOR [Suspect]
     Dosage: 20 MG, UNK
     Route: 065
  3. PROTONIX [Suspect]
     Dosage: 40 MG, UNK
     Route: 065

REACTIONS (1)
  - MYOCARDIAL INFARCTION [None]
